FAERS Safety Report 20086263 (Version 1)
Quarter: 2021Q4

REPORT INFORMATION
  Report Type: Spontaneous
  Country: US (occurrence: US)
  Receive Date: 20211118
  Receipt Date: 20211118
  Transmission Date: 20220303
  Serious: No
  Sender: FDA-Public Use
  Company Number: US-GALDERMA-US2021018205

PATIENT

DRUGS (5)
  1. PROACTIV MD ADAPALENE ACNE TREATMENT [Suspect]
     Active Substance: ADAPALENE
     Indication: Acne
     Dosage: 1 DOSAGE FORM, QD, MOSTLY EVERYDAY, ONCE A DAY, AS DIRECTED ON THE BACK OF BOTTLE
     Route: 061
     Dates: start: 202107
  2. PROACTIV MD DAILY OIL CONTROL SPF 30 [Suspect]
     Active Substance: AVOBENZONE\OCTISALATE\OCTOCRYLENE
     Indication: Acne
     Dosage: 1 DOSAGE FORM, QD, MOSTLY EVERYDAY, CUTANEOUS SOLUTION
     Route: 061
     Dates: start: 202107
  3. Proactiv MD Ultra Hydrating Moisturizer [Concomitant]
     Indication: Acne
     Dosage: 1 DOSAGE FORM, QD, MOSTLY EVERYDAY, ONCE A DAY
     Route: 061
     Dates: start: 202107
  4. Proactiv MD Ultra Gentle Cleanser [Concomitant]
     Indication: Acne
     Dosage: 1 DOSAGE FORM, QD, MOSTLY EVERYDAY, ONCE A DAY
     Route: 061
     Dates: start: 202107
  5. Proactiv Post Acne Scar Gel [Concomitant]
     Indication: Acne
     Dosage: 1 DOSAGE FORM, QD, MOSTLY EVERYDAY, ONCE A DAY
     Route: 061
     Dates: start: 202107

REACTIONS (1)
  - Drug ineffective [Unknown]
